FAERS Safety Report 18417855 (Version 2)
Quarter: 2020Q4

REPORT INFORMATION
  Report Type: Spontaneous
  Country: IT (occurrence: IT)
  Receive Date: 20201022
  Receipt Date: 20201105
  Transmission Date: 20210114
  Serious: Yes (Hospitalization, Other)
  Sender: FDA-Public Use
  Company Number: IT-BAXTER-2020BAX021253

PATIENT
  Age: 27 Year
  Sex: Male

DRUGS (4)
  1. DOXIL [Suspect]
     Active Substance: DOXORUBICIN HYDROCHLORIDE
     Indication: GASTRIC CANCER
     Dosage: (ON THE FIRST DAY)
     Route: 065
     Dates: start: 198412
  2. 5-FLUOROURACIL [Suspect]
     Active Substance: FLUOROURACIL
     Indication: GASTRIC CANCER
     Dosage: (ON THE EIGHT DAY)
     Route: 065
     Dates: start: 198412
  3. 5-FLUOROURACIL [Suspect]
     Active Substance: FLUOROURACIL
     Dosage: (ON THE FIRST DAY)
     Route: 065
     Dates: start: 198412
  4. MITOMYCIN. [Suspect]
     Active Substance: MITOMYCIN
     Indication: GASTRIC CANCER
     Dosage: (ON THE FIRST DAY)
     Route: 065
     Dates: start: 198412

REACTIONS (2)
  - Drug interaction [Unknown]
  - Cardiotoxicity [Recovered/Resolved]
